FAERS Safety Report 9105816 (Version 1)
Quarter: 2013Q1

REPORT INFORMATION
  Report Type: Spontaneous
  Country: US (occurrence: US)
  Receive Date: 20130220
  Receipt Date: 20130220
  Transmission Date: 20140127
  Serious: No
  Sender: FDA-Public Use
  Company Number: US-PFIZER INC-2013061585

PATIENT
  Age: 61 Year
  Sex: Male
  Weight: 81.6 kg

DRUGS (3)
  1. LIPITOR [Suspect]
     Indication: BLOOD CHOLESTEROL INCREASED
     Dosage: 20 MG, 1X/DAY
     Route: 048
  2. LOSARTAN [Concomitant]
     Indication: HYPERTENSION
     Dosage: 50 MG, 1X/DAY
  3. FLECAINIDE [Concomitant]
     Dosage: 50 MG, 3X/DAY

REACTIONS (3)
  - Swelling face [Unknown]
  - Urticaria [Unknown]
  - Lip swelling [Unknown]
